FAERS Safety Report 9325981 (Version 2)
Quarter: 2013Q3

REPORT INFORMATION
  Report Type: Spontaneous
  Country: US (occurrence: US)
  Receive Date: 20130604
  Receipt Date: 20130729
  Transmission Date: 20140515
  Serious: Yes (Hospitalization)
  Sender: FDA-Public Use
  Company Number: US-UCBSA-087597

PATIENT
  Sex: Female

DRUGS (2)
  1. LORTAB [Suspect]
     Dosage: PILLS, EVERY 4 HOURS
  2. BUTRANS [Concomitant]

REACTIONS (4)
  - Vomiting [Unknown]
  - Pain [Not Recovered/Not Resolved]
  - Constipation [Not Recovered/Not Resolved]
  - Crohn^s disease [Recovered/Resolved]
